FAERS Safety Report 26134448 (Version 2)
Quarter: 2025Q4

REPORT INFORMATION
  Report Type: Report from Study
  Country: TH (occurrence: TH)
  Receive Date: 20251209
  Receipt Date: 20251212
  Transmission Date: 20260117
  Serious: Yes (Death)
  Sender: ALEXION PHARMACEUTICALS
  Company Number: TH-AstraZeneca-CH-01009929A

PATIENT
  Age: 69 Year
  Sex: Female

DRUGS (1)
  1. OSIMERTINIB [Suspect]
     Active Substance: OSIMERTINIB
     Indication: Non-small cell lung cancer
     Dosage: 80 MILLIGRAM, QD
     Dates: start: 20250915

REACTIONS (1)
  - Death [Fatal]

NARRATIVE: CASE EVENT DATE: 20251204
